FAERS Safety Report 5199324-2 (Version None)
Quarter: 2006Q4

REPORT INFORMATION
  Report Type: 
  Country: None (occurrence: None)
  Receive Date: 20060919
  Receipt Date: 20060616
  Transmission Date: 20070319
  Serious: Yes (Hospitalization)
  Sender: FDA-Public Use
  Company Number: BDI-008339

PATIENT
  Age: 53 Year
  Sex: Female
  Weight: 76.8 kg

DRUGS (2)
  1. MULTIHANCE [Suspect]
     Indication: BACK PAIN
     Dosage: 15 ML ONCE IV
     Route: 042
     Dates: start: 20060615, end: 20060615
  2. MULTIHANCE [Suspect]
     Indication: NUCLEAR MAGNETIC RESONANCE IMAGING
     Dosage: 15 ML ONCE IV
     Route: 042
     Dates: start: 20060615, end: 20060615

REACTIONS (1)
  - HYPERSENSITIVITY [None]
